FAERS Safety Report 20913613 (Version 1)
Quarter: 2022Q2

REPORT INFORMATION
  Report Type: Report from Study
  Country: BR (occurrence: BR)
  Receive Date: 20220604
  Receipt Date: 20220604
  Transmission Date: 20220721
  Serious: Yes (Hospitalization, Other)
  Sender: FDA-Public Use
  Company Number: BR-ABBVIE-22K-020-4420019-00

PATIENT
  Sex: Female
  Weight: 53 kg

DRUGS (2)
  1. RINVOQ [Suspect]
     Active Substance: UPADACITINIB
     Indication: Rheumatoid arthritis
     Route: 048
     Dates: start: 20220112, end: 2022
  2. RINVOQ [Suspect]
     Active Substance: UPADACITINIB
     Route: 048
     Dates: start: 2022

REACTIONS (5)
  - Renal disorder [Not Recovered/Not Resolved]
  - Malaise [Unknown]
  - Procedural pain [Unknown]
  - Immunodeficiency [Unknown]
  - Post procedural complication [Unknown]

NARRATIVE: CASE EVENT DATE: 20220101
